FAERS Safety Report 6338392-9 (Version None)
Quarter: 2009Q3

REPORT INFORMATION
  Report Type: 
  Country: None (occurrence: None)
  Receive Date: 20090901
  Receipt Date: 20090826
  Transmission Date: 20100115
  Serious: Yes (Death, Hospitalization)
  Sender: FDA-Public Use
  Company Number: 2009US003279

PATIENT
  Age: 61 Year
  Sex: Female
  Weight: 78.1 kg

DRUGS (15)
  1. PROGRAF [Suspect]
     Indication: RENAL AND LIVER TRANSPLANT
     Dosage: 0.5 MG, BID, ORAL
     Route: 048
     Dates: start: 20090501, end: 20090803
  2. PREDNISONE TAB [Concomitant]
  3. METOPROLOL TARTRATE [Concomitant]
  4. PROTONIX [Concomitant]
  5. COLACE (DOCUSATE SODIUM) [Concomitant]
  6. MULTIVITAMIN [Concomitant]
  7. DILAUDID [Concomitant]
  8. ZOFRAN [Concomitant]
  9. BACTRIM [Concomitant]
  10. ATOVAQUONE [Concomitant]
  11. LINEZOLID [Concomitant]
  12. DARBEPOETIN ALFA (DARBEPOETIN ALFA) [Concomitant]
  13. ASCORBIC ACID [Concomitant]
  14. FOLIC ACID [Concomitant]
  15. LIDOCAINE [Concomitant]

REACTIONS (18)
  - BRAIN HERNIATION [None]
  - CEREBRAL HAEMATOMA [None]
  - DEEP VEIN THROMBOSIS [None]
  - DRUG TOXICITY [None]
  - HAEMOGLOBIN DECREASED [None]
  - HYPOTENSION [None]
  - INCISION SITE INFECTION [None]
  - INTRACRANIAL HAEMATOMA [None]
  - NECROSIS [None]
  - OESOPHAGEAL HAEMORRHAGE [None]
  - POST PROCEDURAL BILE LEAK [None]
  - POST PROCEDURAL HAEMORRHAGE [None]
  - POST PROCEDURAL INFECTION [None]
  - POST PROCEDURAL SEPSIS [None]
  - REVERSIBLE POSTERIOR LEUKOENCEPHALOPATHY SYNDROME [None]
  - SMALL INTESTINAL PERFORATION [None]
  - TACHYCARDIA [None]
  - VOCAL CORD PARALYSIS [None]
